FAERS Safety Report 15462180 (Version 1)
Quarter: 2018Q4

REPORT INFORMATION
  Report Type: Spontaneous
  Country: US (occurrence: US)
  Receive Date: 20181004
  Receipt Date: 20181004
  Transmission Date: 20190204
  Serious: Yes (Death, Life-Threatening, Hospitalization, Other)
  Sender: FDA-Public Use
  Company Number: US-BAXTER-2018BAX024581

PATIENT
  Age: 41 Year
  Sex: Male

DRUGS (26)
  1. KETAMINE [Suspect]
     Active Substance: KETAMINE
     Dosage: UP-TITRATION
     Route: 041
  2. KETAMINE [Suspect]
     Active Substance: KETAMINE
     Dosage: 3 TO 4MG/KG/HOUR ON HOSPITAL DAY 25 (KETAMINE DAY TEN)
     Route: 041
  3. LEVETIRACETAM. [Suspect]
     Active Substance: LEVETIRACETAM
     Indication: STATUS EPILEPTICUS
     Route: 065
  4. LIDOCAINE. [Concomitant]
     Active Substance: LIDOCAINE
     Indication: STATUS EPILEPTICUS
     Route: 041
  5. MIDAZOLAM HYDROCHLORIDE INJECTION, USP [Suspect]
     Active Substance: MIDAZOLAM HYDROCHLORIDE
     Indication: STATUS EPILEPTICUS
     Dosage: 0.6 TO 2.8 MG/KG/HOUR
     Route: 041
  6. KETAMINE [Suspect]
     Active Substance: KETAMINE
     Dosage: GOAL OF UP-TITRATING BY 0.5 MG/KG/HOUR
     Route: 041
  7. VALPROIC ACID. [Suspect]
     Active Substance: VALPROIC ACID
     Indication: STATUS EPILEPTICUS
     Route: 065
  8. FOSPHENYTOIN [Suspect]
     Active Substance: FOSPHENYTOIN
     Indication: STATUS EPILEPTICUS
     Route: 065
  9. PHENOBARBITONE [Concomitant]
     Active Substance: PHENOBARBITAL
     Indication: STATUS EPILEPTICUS
     Route: 065
  10. PHENYTOIN. [Concomitant]
     Active Substance: PHENYTOIN
     Indication: STATUS EPILEPTICUS
     Route: 065
  11. GABAPENTIN. [Concomitant]
     Active Substance: GABAPENTIN
     Indication: STATUS EPILEPTICUS
     Route: 065
  12. NITRAZEPAM [Concomitant]
     Active Substance: NITRAZEPAM
     Indication: STATUS EPILEPTICUS
     Route: 065
  13. TOPIRAMATE. [Concomitant]
     Active Substance: TOPIRAMATE
     Indication: STATUS EPILEPTICUS
     Route: 065
  14. SULTIAME [Concomitant]
     Active Substance: SULTHIAME
     Indication: STATUS EPILEPTICUS
     Route: 065
  15. MIDAZOLAM HYDROCHLORIDE INJECTION, USP [Suspect]
     Active Substance: MIDAZOLAM HYDROCHLORIDE
     Dosage: ON HOSPITAL DAY 36 RESTARTED
     Route: 041
  16. PROPOFOL. [Suspect]
     Active Substance: PROPOFOL
     Indication: STATUS EPILEPTICUS
     Route: 041
  17. KETAMINE [Suspect]
     Active Substance: KETAMINE
     Dosage: UP-TITRATED UNTIL BURST SUPPRESSION WAS OBSERVED AT 7.2 MG/KG/HOUR
     Route: 041
  18. CLOBAZAM. [Suspect]
     Active Substance: CLOBAZAM
     Indication: STATUS EPILEPTICUS
     Route: 065
  19. CLONAZEPAM. [Concomitant]
     Active Substance: CLONAZEPAM
     Indication: STATUS EPILEPTICUS
     Route: 065
  20. PROPOFOL. [Suspect]
     Active Substance: PROPOFOL
     Dosage: RESTARTED ON HOSPITAL DAY 36
     Route: 041
  21. KETAMINE [Suspect]
     Active Substance: KETAMINE
     Dosage: MAINTENANCE INFUSION
     Route: 041
  22. KETAMINE [Suspect]
     Active Substance: KETAMINE
     Dosage: ON HOSPITAL DAY 36
     Route: 041
  23. CARBAMAZEPINE. [Suspect]
     Active Substance: CARBAMAZEPINE
     Indication: STATUS EPILEPTICUS
     Route: 065
  24. LACOSAMIDE. [Concomitant]
     Active Substance: LACOSAMIDE
     Indication: STATUS EPILEPTICUS
     Route: 065
  25. KETAMINE [Suspect]
     Active Substance: KETAMINE
     Indication: STATUS EPILEPTICUS
     Dosage: BOLUS
     Route: 040
  26. KETAMINE [Suspect]
     Active Substance: KETAMINE
     Dosage: DOSE WAS HALVED, ON HOSPITAL DAY 22 (KETAMINE DAY SEVEN)
     Route: 041

REACTIONS (6)
  - Metabolic acidosis [Fatal]
  - Acidosis hyperchloraemic [Fatal]
  - Circulatory collapse [Fatal]
  - Cardiac arrest [Fatal]
  - Haemodynamic instability [Unknown]
  - Drug ineffective [Unknown]
